FAERS Safety Report 24328955 (Version 1)
Quarter: 2024Q3

REPORT INFORMATION
  Report Type: Spontaneous
  Country: US (occurrence: None)
  Receive Date: 20240917
  Receipt Date: 20240917
  Transmission Date: 20241017
  Serious: Yes (Other)
  Sender: Public
  Company Number: None

PATIENT
  Age: 51 Year
  Sex: Female
  Weight: 90 kg

DRUGS (7)
  1. GLATOPA [Suspect]
     Active Substance: GLATIRAMER ACETATE
     Indication: Multiple sclerosis
     Dates: start: 20240723, end: 20240912
  2. LEXAPRO [Concomitant]
     Active Substance: ESCITALOPRAM OXALATE
  3. AMOXICILLIN [Concomitant]
     Active Substance: AMOXICILLIN
  4. IBUPROFEN [Concomitant]
     Active Substance: IBUPROFEN
  5. TYLENOL [Concomitant]
     Active Substance: ACETAMINOPHEN
  6. VITAMIN D [Concomitant]
     Active Substance: VITAMIN D NOS
  7. VITAMIN B [Concomitant]
     Active Substance: VITAMIN B

REACTIONS (9)
  - Chest discomfort [None]
  - Chills [None]
  - Headache [None]
  - Flushing [None]
  - Chills [None]
  - Chills [None]
  - Gait disturbance [None]
  - Speech disorder [None]
  - Injection related reaction [None]

NARRATIVE: CASE EVENT DATE: 20240912
